FAERS Safety Report 7150939-1 (Version None)
Quarter: 2010Q4

REPORT INFORMATION
  Report Type: 
  Country: None (occurrence: None)
  Receive Date: 20101210
  Receipt Date: 20101129
  Transmission Date: 20110411
  Serious: Yes (Congenital Anomaly)
  Sender: FDA-Public Use
  Company Number: A0680359A

PATIENT
  Sex: Male

DRUGS (3)
  1. PAXIL [Suspect]
     Indication: DEPRESSION
     Dates: start: 20010101, end: 20070101
  2. PRENATAL VITAMINS [Concomitant]
  3. BRETHINE [Concomitant]

REACTIONS (5)
  - ASTHMA [None]
  - BRONCHITIS [None]
  - CONGENITAL ANOMALY [None]
  - DRUG EXPOSURE DURING PREGNANCY [None]
  - PULMONARY MALFORMATION [None]
